FAERS Safety Report 8160159-X (Version None)
Quarter: 2012Q1

REPORT INFORMATION
  Report Type: 
  Country: None (occurrence: None)
  Receive Date: 20120223
  Receipt Date: 20120217
  Transmission Date: 20120608
  Serious: Yes (Other)
  Sender: FDA-Public Use
  Company Number: US-ELI_LILLY_AND_COMPANY-US201202006010

PATIENT
  Sex: Male

DRUGS (4)
  1. BYSTOLIC [Concomitant]
  2. CIALIS [Suspect]
     Indication: ERECTILE DYSFUNCTION
     Dosage: UNK
     Dates: start: 20050101, end: 20060101
  3. CIALIS [Suspect]
     Dosage: UNK
     Dates: start: 20070101, end: 20080101
  4. CIALIS [Suspect]
     Dosage: 10 MG, AS NEEDED

REACTIONS (1)
  - RENAL TRANSPLANT [None]
